FAERS Safety Report 24414908 (Version 1)
Quarter: 2024Q4

REPORT INFORMATION
  Report Type: Report from Study
  Country: IT (occurrence: IT)
  Receive Date: 20241009
  Receipt Date: 20241009
  Transmission Date: 20250115
  Serious: Yes (Death, Hospitalization)
  Sender: ROCHE
  Company Number: None

PATIENT
  Age: 51 Year
  Sex: Female

DRUGS (7)
  1. RITUXIMAB [Suspect]
     Active Substance: RITUXIMAB
     Indication: Central nervous system lymphoma
     Dosage: R-MINI CHOP PLUS IBRUTINIB 560 MG/D
     Route: 041
  2. IMBRUVICA [Suspect]
     Active Substance: IBRUTINIB
     Indication: Central nervous system lymphoma
     Dosage: (COMPASSIONATE USE)
     Route: 048
     Dates: start: 20201230, end: 20210111
  3. IMBRUVICA [Suspect]
     Active Substance: IBRUTINIB
     Route: 048
     Dates: start: 20201209
  4. CYCLOPHOSPHAMIDE [Suspect]
     Active Substance: CYCLOPHOSPHAMIDE
     Indication: Central nervous system lymphoma
     Dosage: R-MINI CHOP PLUS IBRUTINIB 560 MG/D
     Route: 065
  5. DOXORUBICIN HYDROCHLORIDE [Suspect]
     Active Substance: DOXORUBICIN HYDROCHLORIDE
     Indication: Central nervous system lymphoma
     Dosage: R-MINI CHOP PLUS IBRUTINIB 560 MG/D
     Route: 065
  6. VINCRISTINE SULFATE [Suspect]
     Active Substance: VINCRISTINE SULFATE
     Indication: Central nervous system lymphoma
     Dosage: R-MINI CHOP PLUS IBRUTINIB 560 MG/D
     Route: 065
  7. PREDNISONE [Suspect]
     Active Substance: PREDNISONE
     Indication: Central nervous system lymphoma
     Dosage: R-MINI CHOP PLUS IBRUTINIB 560 MG/D
     Route: 065

REACTIONS (10)
  - Infection [Fatal]
  - Pneumonia [Fatal]
  - Central nervous system lymphoma [Fatal]
  - Disease progression [Fatal]
  - Neutropenia [Fatal]
  - Thrombocytopenia [Fatal]
  - Aspergillus infection [Fatal]
  - Cytomegalovirus infection reactivation [Fatal]
  - SARS-CoV-2 test positive [Fatal]
  - Off label use [Fatal]

NARRATIVE: CASE EVENT DATE: 20210111
